FAERS Safety Report 4317191-3 (Version None)
Quarter: 2004Q1

REPORT INFORMATION
  Report Type: 
  Country: None (occurrence: None)
  Receive Date: 20040312
  Receipt Date: 20040301
  Transmission Date: 20041129
  Serious: Yes (Other)
  Sender: FDA-Public Use
  Company Number: USA-2004-0013456

PATIENT
  Age: 45 Year
  Sex: Female

DRUGS (5)
  1. MS CONTIN [Suspect]
     Indication: PAIN
     Dosage: 100 MG, Q12H, ORAL
     Route: 048
     Dates: start: 20031101, end: 20040105
  2. DURAGESIC [Concomitant]
  3. PERCOCET [Concomitant]
  4. ZOLOFT [Concomitant]
  5. ESTRADIOL [Concomitant]

REACTIONS (4)
  - DEATH OF CHILD [None]
  - DRUG SCREEN POSITIVE [None]
  - MEDICATION ERROR [None]
  - ROAD TRAFFIC ACCIDENT [None]
